FAERS Safety Report 13763279 (Version 7)
Quarter: 2017Q4

REPORT INFORMATION
  Report Type: Report from Study
  Country: JP (occurrence: JP)
  Receive Date: 20170718
  Receipt Date: 20171228
  Transmission Date: 20180320
  Serious: Yes (Death, Hospitalization)
  Sender: FDA-Public Use
  Company Number: JP-PFIZER INC-2017301315

PATIENT
  Age: 77 Year
  Sex: Female
  Weight: 48 kg

DRUGS (5)
  1. MUCOSTA [Suspect]
     Active Substance: REBAMIPIDE
     Dosage: UNK
  2. XELJANZ [Suspect]
     Active Substance: TOFACITINIB CITRATE
     Indication: RHEUMATOID ARTHRITIS
     Dosage: 10 MG, DAILY
     Route: 048
     Dates: start: 20151017, end: 20170527
  3. BONOTEO [Suspect]
     Active Substance: MINODRONIC ACID
     Indication: OSTEOPOROSIS
     Dosage: UNK
     Route: 048
     Dates: start: 20151212
  4. PREDNISOLONE. [Suspect]
     Active Substance: PREDNISOLONE
     Indication: RHEUMATOID ARTHRITIS
     Dosage: 5 MG, DAILY
     Route: 048
     Dates: end: 20170527
  5. LOXONIN [Suspect]
     Active Substance: LOXOPROFEN SODIUM
     Dosage: UNK

REACTIONS (1)
  - Colon cancer [Fatal]

NARRATIVE: CASE EVENT DATE: 20170221
